FAERS Safety Report 7430995-3 (Version None)
Quarter: 2011Q2

REPORT INFORMATION
  Report Type: 
  Country: None (occurrence: None)
  Receive Date: 20110421
  Receipt Date: 20110418
  Transmission Date: 20111010
  Serious: Yes (Hospitalization)
  Sender: FDA-Public Use
  Company Number: US-ELI_LILLY_AND_COMPANY-US201104005551

PATIENT
  Sex: Female

DRUGS (11)
  1. SINGULAIR [Concomitant]
     Dosage: 10 MG, UNK
  2. OMEPRAZOLE [Concomitant]
     Dosage: 20 MG, UNK
  3. ARICEPT [Concomitant]
     Dosage: 10 MG, UNK
  4. SYNTHROID [Concomitant]
     Dosage: 25 MG, UNK
  5. LANTUS [Concomitant]
     Dosage: UNK
  6. SIMVASTATIN [Concomitant]
     Dosage: 40 MG, UNK
  7. COZAAR [Concomitant]
     Dosage: 50 MG, UNK
  8. HUMALOG [Suspect]
     Dosage: UNK, OTHER
  9. HUMALOG [Suspect]
     Indication: TYPE 2 DIABETES MELLITUS
     Dosage: UNK, OTHER
  10. GABAPENTIN [Concomitant]
     Dosage: 300 MG, UNK
  11. ANTIVERT [Concomitant]
     Dosage: 25 MG, UNK

REACTIONS (5)
  - MALAISE [None]
  - GALLBLADDER DISORDER [None]
  - DRUG INEFFECTIVE [None]
  - BLOOD GLUCOSE INCREASED [None]
  - URINARY TRACT INFECTION [None]
